FAERS Safety Report 10965021 (Version 3)
Quarter: 2015Q2

REPORT INFORMATION
  Report Type: Spontaneous
  Country: JP (occurrence: JP)
  Receive Date: 20150330
  Receipt Date: 20150429
  Transmission Date: 20150821
  Serious: Yes (Death, Hospitalization, Disabling)
  Sender: FDA-Public Use
  Company Number: JP-BRISTOL-MYERS SQUIBB COMPANY-BMS-2015-017809

PATIENT
  Age: 54 Year
  Sex: Male

DRUGS (2)
  1. 5-FU                               /00098801/ [Suspect]
     Active Substance: FLUOROURACIL
     Indication: SQUAMOUS CELL CARCINOMA OF HEAD AND NECK
     Route: 041
  2. ERBITUX [Suspect]
     Active Substance: CETUXIMAB
     Indication: SQUAMOUS CELL CARCINOMA OF HEAD AND NECK
     Dosage: UNK
     Route: 041
     Dates: start: 20140501, end: 20140918

REACTIONS (13)
  - Hepatic enzyme abnormal [Not Recovered/Not Resolved]
  - Neutrophil count decreased [Recovered/Resolved]
  - Platelet count decreased [Recovering/Resolving]
  - Paronychia [Not Recovered/Not Resolved]
  - Cerebral ischaemia [Unknown]
  - White blood cell count decreased [Recovered/Resolved]
  - Pleural effusion [Fatal]
  - Cerebral infarction [Unknown]
  - Dry skin [Not Recovered/Not Resolved]
  - Dermatitis acneiform [Recovering/Resolving]
  - Stomatitis [Not Recovered/Not Resolved]
  - Hypocalcaemia [Recovered/Resolved]
  - Anaemia [Recovering/Resolving]

NARRATIVE: CASE EVENT DATE: 20140507
